FAERS Safety Report 25263189 (Version 1)
Quarter: 2025Q2

REPORT INFORMATION
  Report Type: Spontaneous
  Country: GB (occurrence: GB)
  Receive Date: 20250502
  Receipt Date: 20250502
  Transmission Date: 20250717
  Serious: Yes (Life-Threatening, Hospitalization, Other)
  Sender: TEVA
  Company Number: GB-MHRA-35369667

PATIENT
  Age: 46 Year
  Sex: Female

DRUGS (11)
  1. PREDNISOLONE [Suspect]
     Active Substance: PREDNISOLONE
     Indication: Product used for unknown indication
     Dosage: ...  THEN SIX TABLETS FOR 7 DAYS...
     Route: 065
  2. PREDNISOLONE [Suspect]
     Active Substance: PREDNISOLONE
     Indication: Product used for unknown indication
     Dosage: ... THEN FOUR TABLETS FOR 7 DAYS...
     Route: 065
  3. PREDNISOLONE [Suspect]
     Active Substance: PREDNISOLONE
     Indication: Product used for unknown indication
     Dosage: ... THEN SEVEN TABLETS FOR 7 DAYS...
     Route: 065
  4. PREDNISOLONE [Suspect]
     Active Substance: PREDNISOLONE
     Indication: Product used for unknown indication
     Dosage: ...THEN THREE TABLETS FOR 7 DAYS...
     Route: 065
  5. PREDNISOLONE [Suspect]
     Active Substance: PREDNISOLONE
     Indication: Product used for unknown indication
     Dosage: ...  THEN TWO TABLETS FOR 7 DAYS...
     Route: 065
  6. PREDNISOLONE [Suspect]
     Active Substance: PREDNISOLONE
     Indication: Product used for unknown indication
     Dosage: ... THEN ONE TABLET FOR 7 DAYS.
     Route: 065
     Dates: start: 20241107
  7. PREDNISOLONE [Suspect]
     Active Substance: PREDNISOLONE
     Indication: Product used for unknown indication
     Dosage: ... TAKE EIGHT TABLETS EACH MORNING FOR 7 DAYS...
     Route: 065
  8. PREDNISOLONE [Suspect]
     Active Substance: PREDNISOLONE
     Indication: Product used for unknown indication
     Dosage: ...  THEN FIVE TABLETS 7 DAYS...
     Route: 065
  9. CALCIUM CARBONATE\CHOLECALCIFEROL [Concomitant]
     Active Substance: CALCIUM CARBONATE\CHOLECALCIFEROL
     Indication: Product used for unknown indication
     Dosage: CHEW OR SUCK ONE TABLET TWICE A DAY IN THE MORNING AND AT NIGHT FOR 56 DAYS,COLECALCIFEROL + CALC...
     Route: 065
  10. ENSURE [Concomitant]
     Active Substance: AMINO ACIDS\DEXTROSE\ELECTROLYTES NOS\SOYBEAN OIL\VITAMINS
     Indication: Product used for unknown indication
     Dosage: DRINK THE CONTENTS OF ONE BOTTLE TWICE A DAY FOR 28 DAYS AS DIRECTED.,JUCE (ORANGE) LIQUID
     Route: 048
  11. MESALAMINE [Concomitant]
     Active Substance: MESALAMINE
     Indication: Product used for unknown indication
     Dosage: OCTASA 800 MG MR GASTRO-RESISTANT TABLETS THREE TWICE A , 800 MG MR GASTRO-RESISTANT TABLETS
     Route: 065

REACTIONS (1)
  - Diabetic ketoacidosis [Recovered/Resolved]

NARRATIVE: CASE EVENT DATE: 20241122
